FAERS Safety Report 16877225 (Version 1)
Quarter: 2019Q4

REPORT INFORMATION
  Report Type: Spontaneous
  Country: US (occurrence: US)
  Receive Date: 20191002
  Receipt Date: 20191002
  Transmission Date: 20200122
  Serious: Yes (Hospitalization)
  Sender: FDA-Public Use
  Company Number: None

PATIENT
  Age: 63 Year
  Sex: Female
  Weight: 139.5 kg

DRUGS (7)
  1. VANCOMYCIN 2G [Concomitant]
     Dates: start: 20180827, end: 20180827
  2. PROPOFOL 200MG [Concomitant]
     Dates: start: 20180827, end: 20180827
  3. MAGNESIUM SULFATE 4G [Concomitant]
     Dates: start: 20180827, end: 20180827
  4. MIDAZOLAM 2MG [Concomitant]
     Dates: start: 20180827, end: 20180827
  5. LIDOCAINE. [Suspect]
     Active Substance: LIDOCAINE
     Indication: PAIN MANAGEMENT
     Dosage: ?          OTHER FREQUENCY:3MG/MIN.;?
     Route: 041
     Dates: start: 20180827, end: 20180828
  6. KETAMINE [Suspect]
     Active Substance: KETAMINE
     Dates: start: 20180827, end: 20180827
  7. FENTANYL 100 MCG [Concomitant]
     Active Substance: FENTANYL
     Dates: start: 20180827, end: 20180827

REACTIONS (2)
  - Vision blurred [None]
  - Feeling abnormal [None]

NARRATIVE: CASE EVENT DATE: 20180827
